FAERS Safety Report 5832098-8 (Version None)
Quarter: 2008Q3

REPORT INFORMATION
  Report Type: 
  Country: None (occurrence: None)
  Receive Date: 20080804
  Receipt Date: 20080725
  Transmission Date: 20090109
  Serious: Yes (Hospitalization)
  Sender: FDA-Public Use
  Company Number: JP-NOVOPROD-275232

PATIENT
  Age: 16 Year
  Sex: Male

DRUGS (2)
  1. NORDITROPIN [Suspect]
     Indication: GROWTH HORMONE DEFICIENCY
     Dosage: .175 MG/KG, QW
     Route: 058
  2. ACTOS [Concomitant]

REACTIONS (3)
  - AUTOIMMUNE HEPATITIS [None]
  - GLUCOSE TOLERANCE IMPAIRED [None]
  - HYPERINSULINAEMIA [None]
